FAERS Safety Report 8281708-7 (Version None)
Quarter: 2012Q2

REPORT INFORMATION
  Report Type: 
  Country: None (occurrence: None)
  Receive Date: 20120413
  Receipt Date: 20120411
  Transmission Date: 20120825
  Serious: No
  Sender: FDA-Public Use
  Company Number: US-PFIZER INC-2012090688

PATIENT
  Sex: Male

DRUGS (1)
  1. FLECTOR [Suspect]
     Indication: CONTUSION
     Dosage: UNK, TWO TIMES A DAY
     Dates: start: 20120401

REACTIONS (1)
  - DRUG INEFFECTIVE [None]
